FAERS Safety Report 6608339-6 (Version None)
Quarter: 2010Q1

REPORT INFORMATION
  Report Type: 
  Country: None (occurrence: None)
  Receive Date: 20100301
  Receipt Date: 20100222
  Transmission Date: 20100710
  Serious: Yes (Hospitalization)
  Sender: FDA-Public Use
  Company Number: DE-ELI_LILLY_AND_COMPANY-DE201002005800

PATIENT
  Age: 67 Year
  Sex: Female

DRUGS (7)
  1. BYETTA [Suspect]
     Indication: TYPE 2 DIABETES MELLITUS
     Dosage: 10 UG, 2/D
     Route: 058
     Dates: start: 20091201, end: 20100201
  2. METFORMIN HYDROCHLORIDE [Concomitant]
     Dosage: UNK, UNKNOWN
     Route: 065
  3. ASPIRIN [Concomitant]
     Dosage: UNK, UNKNOWN
     Route: 065
  4. BLOPRESS [Concomitant]
     Dosage: UNK, UNKNOWN
     Route: 065
  5. CORVATON [Concomitant]
     Dosage: UNK, UNKNOWN
     Route: 065
  6. PANTOZOL [Concomitant]
     Dosage: UNK, UNKNOWN
     Route: 065
  7. CYMBALTA [Concomitant]
     Dosage: UNK, UNKNOWN
     Route: 065
     Dates: end: 20100201

REACTIONS (3)
  - MYOCARDIAL INFARCTION [None]
  - NAUSEA [None]
  - VOMITING [None]
